FAERS Safety Report 9037268 (Version 4)
Quarter: 2014Q1

REPORT INFORMATION
  Report Type: Report from Study
  Country: US (occurrence: US)
  Receive Date: 20130129
  Receipt Date: 20140120
  Transmission Date: 20141002
  Serious: Yes (Hospitalization)
  Sender: FDA-Public Use
  Company Number: US-BIOGENIDEC-2013BI008293

PATIENT
  Age: 59 Year
  Sex: Female
  Weight: 90 kg

DRUGS (13)
  1. TYSABRI [Suspect]
     Indication: MULTIPLE SCLEROSIS
     Route: 042
     Dates: start: 20090602
  2. TYSABRI [Suspect]
     Indication: MULTIPLE SCLEROSIS
     Dates: start: 20130307
  3. ZOCOR [Concomitant]
     Route: 048
  4. BISOPROLOL [Concomitant]
  5. HCTZ [Concomitant]
     Route: 048
  6. ASPIRIN [Concomitant]
     Route: 048
  7. ESTRADIOL [Concomitant]
     Dates: start: 20110523
  8. VITAMIN C [Concomitant]
     Route: 048
  9. VITAMIN D3 [Concomitant]
     Route: 048
  10. FISH OIL [Concomitant]
     Route: 048
  11. GABAPENTIN [Concomitant]
     Route: 048
     Dates: start: 20120830
  12. LYRICA [Concomitant]
     Route: 048
     Dates: start: 20120404
  13. SOLU-MEDROL [Concomitant]
     Route: 042
     Dates: start: 20120906

REACTIONS (1)
  - Clear cell renal cell carcinoma [Recovered/Resolved]
